FAERS Safety Report 12369726 (Version 2)
Quarter: 2016Q2

REPORT INFORMATION
  Report Type: Spontaneous
  Country: US (occurrence: US)
  Receive Date: 20160516
  Receipt Date: 20160601
  Transmission Date: 20160815
  Serious: Yes (Hospitalization, Disabling, Other)
  Sender: FDA-Public Use
  Company Number: US-SHIRE-US201605788

PATIENT
  Age: 7 Year
  Sex: Female
  Weight: 29.1 kg

DRUGS (6)
  1. HYCET [Concomitant]
     Active Substance: ACETAMINOPHEN\HYDROCODONE BITARTRATE
     Indication: PAIN
     Dosage: 4.2 MG, UNKNOWN
     Route: 065
     Dates: start: 20151105, end: 20160213
  2. ZYRTEC [Concomitant]
     Active Substance: CETIRIZINE HYDROCHLORIDE
     Indication: PREMEDICATION
     Dosage: 10 MG, UNKNOWN
     Route: 065
     Dates: start: 2015
  3. TYLENOL [Concomitant]
     Active Substance: ACETAMINOPHEN
     Indication: PREMEDICATION
  4. NAPROXEN. [Concomitant]
     Active Substance: NAPROXEN
     Indication: PAIN
     Dosage: 150 MG, UNKNOWN
     Route: 065
     Dates: start: 20151104
  5. VPRIV [Suspect]
     Active Substance: VELAGLUCERASE ALFA
     Indication: GAUCHER^S DISEASE
     Dosage: 1600 IU, 1X/2WKS
     Route: 041
     Dates: start: 20150310, end: 20151223
  6. TYLENOL [Concomitant]
     Active Substance: ACETAMINOPHEN
     Indication: PAIN
     Dosage: 400 MG, UNKNOWN
     Route: 065
     Dates: start: 201503

REACTIONS (3)
  - Hip fracture [Recovering/Resolving]
  - Osteonecrosis [Unknown]
  - Bone infarction [Recovering/Resolving]

NARRATIVE: CASE EVENT DATE: 20160128
